FAERS Safety Report 21660667 (Version 5)
Quarter: 2023Q2

REPORT INFORMATION
  Report Type: Report from Study
  Country: CA (occurrence: CA)
  Receive Date: 20221130
  Receipt Date: 20230519
  Transmission Date: 20230722
  Serious: Yes (Death, Hospitalization, Other)
  Sender: FDA-Public Use
  Company Number: CA-SUN PHARMACEUTICAL INDUSTRIES LTD-2022R1-335604

PATIENT
  Age: 59 Year
  Sex: Female

DRUGS (2)
  1. TILDRAKIZUMAB [Suspect]
     Active Substance: TILDRAKIZUMAB
     Indication: Psoriasis
     Dosage: 100 MILLIGRAM, WK0,4,Q12
     Route: 058
     Dates: start: 20220426, end: 20230505
  2. SPIRONOLACTONE [Concomitant]
     Active Substance: SPIRONOLACTONE
     Indication: Product used for unknown indication
     Dosage: UNK
     Route: 065

REACTIONS (17)
  - COVID-19 [Unknown]
  - Bronchitis [Unknown]
  - Skin discomfort [Recovering/Resolving]
  - Cough [Recovering/Resolving]
  - Malaise [Recovering/Resolving]
  - Fatigue [Unknown]
  - Nausea [Unknown]
  - Rhinorrhoea [Unknown]
  - Drug ineffective [Unknown]
  - Insomnia [Unknown]
  - Psoriasis [Unknown]
  - Nasopharyngitis [Unknown]
  - Rash macular [Unknown]
  - Therapeutic response decreased [Unknown]
  - Rash [Unknown]
  - Peripheral swelling [Recovered/Resolved]
  - Neoplasm malignant [Fatal]

NARRATIVE: CASE EVENT DATE: 20221106
